FAERS Safety Report 7134190-7 (Version None)
Quarter: 2010Q4

REPORT INFORMATION
  Report Type: 
  Country: None (occurrence: None)
  Receive Date: 20101203
  Receipt Date: 20101130
  Transmission Date: 20110411
  Serious: Yes (Other)
  Sender: FDA-Public Use
  Company Number: US-ROXANE LABORATORIES, INC.-2010-RO-01569RO

PATIENT
  Sex: Male

DRUGS (2)
  1. METOCLOPRAMIDE [Suspect]
     Dates: start: 20010301, end: 20050101
  2. REGLAN [Suspect]
     Dates: start: 20010301, end: 20050101

REACTIONS (9)
  - DISTURBANCE IN ATTENTION [None]
  - DYSKINESIA [None]
  - EXPRESSIVE LANGUAGE DISORDER [None]
  - GRIMACING [None]
  - HYPOTONIA [None]
  - NEUROLEPTIC MALIGNANT SYNDROME [None]
  - STARING [None]
  - TARDIVE DYSKINESIA [None]
  - VISION BLURRED [None]
